FAERS Safety Report 21928177 (Version 2)
Quarter: 2023Q2

REPORT INFORMATION
  Report Type: Spontaneous
  Country: CA (occurrence: None)
  Receive Date: 20230130
  Receipt Date: 20230414
  Transmission Date: 20230721
  Serious: Yes (Other)
  Sender: FDA-Public Use
  Company Number: CA-ROCHE-3274020

PATIENT
  Age: 80 Year
  Sex: Female
  Weight: 114 kg

DRUGS (2)
  1. PIRFENIDONE [Suspect]
     Active Substance: PIRFENIDONE
     Indication: Idiopathic pulmonary fibrosis
     Route: 048
  2. VENTOLIN [Concomitant]
     Active Substance: ALBUTEROL SULFATE

REACTIONS (8)
  - Arteriosclerosis coronary artery [Unknown]
  - Lung disorder [Unknown]
  - Osseous cryptococcosis [Unknown]
  - Restrictive pulmonary disease [Unknown]
  - Aortic arteriosclerosis [Unknown]
  - Bronchiectasis [Unknown]
  - Degenerative bone disease [Unknown]
  - Pulmonary granuloma [Unknown]
